FAERS Safety Report 7966557-9 (Version None)
Quarter: 2011Q4

REPORT INFORMATION
  Report Type: 
  Country: None (occurrence: None)
  Receive Date: 20111208
  Receipt Date: 20111125
  Transmission Date: 20120403
  Serious: Yes (Hospitalization, Other)
  Sender: FDA-Public Use
  Company Number: US-ELI_LILLY_AND_COMPANY-US201108009476

PATIENT
  Sex: Female

DRUGS (13)
  1. FORTEO [Suspect]
     Dosage: 20 UG, QD
  2. ATENOLOL [Concomitant]
  3. FORTEO [Suspect]
     Dosage: 20 UG, QD
  4. ANTIHYPERTENSIVES [Concomitant]
  5. FORTEO [Suspect]
     Dosage: 20 UG, QD
  6. GLYCOLAX [Concomitant]
  7. FLEXERIL [Concomitant]
  8. NORVASC [Concomitant]
  9. NORCO [Concomitant]
  10. FORTEO [Suspect]
     Indication: OSTEOPOROSIS
     Dosage: 20 UG, QD
     Dates: start: 20110826, end: 20110826
  11. VALIUM [Concomitant]
  12. CELEXA [Concomitant]
  13. ANALGESICS [Concomitant]

REACTIONS (16)
  - BACK PAIN [None]
  - PAIN IN EXTREMITY [None]
  - RASH [None]
  - ABNORMAL DREAMS [None]
  - DIZZINESS [None]
  - SPINAL DISORDER [None]
  - HEADACHE [None]
  - CONFUSIONAL STATE [None]
  - BLOOD PRESSURE INCREASED [None]
  - FREQUENT BOWEL MOVEMENTS [None]
  - TRIGGER FINGER [None]
  - GASTROINTESTINAL DISORDER [None]
  - INJECTION SITE HAEMATOMA [None]
  - FALL [None]
  - FEELING ABNORMAL [None]
  - ALCOHOL INTOLERANCE [None]
